FAERS Safety Report 10200369 (Version 1)
Quarter: 2014Q2

REPORT INFORMATION
  Report Type: Spontaneous
  Country: US (occurrence: US)
  Receive Date: 20140528
  Receipt Date: 20140528
  Transmission Date: 20141212
  Serious: Yes (Other)
  Sender: FDA-Public Use
  Company Number: US-PFIZER INC-2014141328

PATIENT
  Age: 74 Year
  Sex: Female

DRUGS (2)
  1. SUTENT [Suspect]
     Dosage: 37.5 MG, CYCLIC (TAKE 2 WEEKS ON AND 1 WEEK OFF)
     Dates: start: 2008
  2. SUTENT [Suspect]
     Dosage: 25 MG, CYCLIC (TAKE 2 WEEKS ON AND 1 WEEK OFF )
     Dates: end: 2010

REACTIONS (2)
  - Myocardial infarction [Unknown]
  - Stress cardiomyopathy [Unknown]
